FAERS Safety Report 4283386-0 (Version None)
Quarter: 2004Q1

REPORT INFORMATION
  Report Type: 
  Country: None (occurrence: None)
  Receive Date: 20040129
  Receipt Date: 20040119
  Transmission Date: 20041129
  Serious: Yes (Death, Life-Threatening, Hospitalization, Disabling)
  Sender: FDA-Public Use
  Company Number: 03P-087-0219881-00

PATIENT
  Age: 53 Year
  Sex: Male

DRUGS (7)
  1. KALETRA [Suspect]
     Indication: HIV INFECTION
     Dosage: 6 CAPSULE, 1 IN 1 D, PER ORAL
     Route: 048
     Dates: start: 20020715, end: 20030610
  2. ZIDOVUDINE [Suspect]
     Indication: HIV INFECTION
     Dosage: 400 MG, 1 IN 1 D, PER ORAL
     Route: 048
     Dates: start: 20020715, end: 20020821
  3. LAMIVUDINE [Suspect]
     Indication: HIV INFECTION
     Dosage: 300 MG, 1 IN 1 D, PER ORAL
     Route: 048
     Dates: start: 20020715, end: 20030615
  4. STAVUDINE [Suspect]
     Indication: HIV INFECTION
     Dosage: 60 MG, 1 IN 1 D, PER ORAL
     Route: 048
     Dates: start: 20020822, end: 20030615
  5. EFAVIRENZ [Suspect]
     Indication: HIV INFECTION
     Dosage: 600 MG, 1 IN 1 D, PER ORAL
     Route: 048
     Dates: start: 20030611, end: 20030615
  6. CLINDAMYCIN [Concomitant]
  7. MEROPENEM TRIHYDRATE [Concomitant]

REACTIONS (8)
  - ANAEMIA [None]
  - BODY TEMPERATURE INCREASED [None]
  - CD4 LYMPHOCYTES DECREASED [None]
  - CHEST X-RAY ABNORMAL [None]
  - DEPRESSED LEVEL OF CONSCIOUSNESS [None]
  - HYPERLIPIDAEMIA [None]
  - INFECTION [None]
  - RENAL IMPAIRMENT [None]
